FAERS Safety Report 16751131 (Version 5)
Quarter: 2020Q2

REPORT INFORMATION
  Report Type: Report from Study
  Country: US (occurrence: US)
  Receive Date: 20190828
  Receipt Date: 20200406
  Transmission Date: 20200713
  Serious: Yes (Death, Hospitalization)
  Sender: FDA-Public Use
  Company Number: US-ACTELION-A-NJ2019-191155

PATIENT
  Age: 79 Year
  Sex: Female
  Weight: 77.1 kg

DRUGS (5)
  1. OPSUMIT [Suspect]
     Active Substance: MACITENTAN
     Indication: PULMONARY ARTERIAL HYPERTENSION
     Dosage: 10 MG, QD
     Route: 048
  2. TADALAFIL. [Concomitant]
     Active Substance: TADALAFIL
  3. TYVASO [Suspect]
     Active Substance: TREPROSTINIL
     Indication: PRODUCT USED FOR UNKNOWN INDICATION
     Dosage: UNK
     Route: 065
  4. TYVASO [Suspect]
     Active Substance: TREPROSTINIL
     Dosage: UNK
     Route: 065
  5. AMLODIPINE [Concomitant]
     Active Substance: AMLODIPINE BESYLATE

REACTIONS (16)
  - Hospice care [Unknown]
  - Dizziness [Unknown]
  - Head discomfort [Recovered/Resolved]
  - Oedema peripheral [Unknown]
  - Appetite disorder [Recovering/Resolving]
  - Malaise [Unknown]
  - Asthenia [Unknown]
  - Dyspnoea [Unknown]
  - Dysphonia [Unknown]
  - Taste disorder [Unknown]
  - Fall [Unknown]
  - Nausea [Unknown]
  - Death [Fatal]
  - Cardiac disorder [Unknown]
  - Cough [Unknown]
  - Fatigue [Unknown]

NARRATIVE: CASE EVENT DATE: 20190616
